FAERS Safety Report 10257533 (Version 1)
Quarter: 2014Q2

REPORT INFORMATION
  Report Type: Spontaneous
  Country: US (occurrence: US)
  Receive Date: 20140625
  Receipt Date: 20140625
  Transmission Date: 20141212
  Serious: No
  Sender: FDA-Public Use
  Company Number: US-GLAXOSMITHKLINE-A1066918A

PATIENT
  Age: 84 Year
  Sex: Female

DRUGS (9)
  1. VERAMYST [Suspect]
     Indication: BRONCHITIS
     Dosage: 2SPR PER DAY
     Route: 045
     Dates: start: 20140306, end: 20140323
  2. CEFUROXIME [Suspect]
     Indication: BRONCHITIS
     Dosage: 500MG TWICE PER DAY
     Route: 048
     Dates: start: 20140314, end: 20140323
  3. NEILMED SINUS RINSE [Concomitant]
  4. DULERA [Concomitant]
  5. SYMBICORT [Concomitant]
  6. SYNTHROID [Concomitant]
  7. ENALAPRIL [Concomitant]
  8. VITAMINS [Concomitant]
  9. CORTISONE CREAM [Concomitant]

REACTIONS (11)
  - Hypersensitivity [Recovering/Resolving]
  - Rash macular [Recovering/Resolving]
  - Burning sensation [Recovering/Resolving]
  - Erythema [Recovering/Resolving]
  - Ear swelling [Recovering/Resolving]
  - Lip swelling [Recovering/Resolving]
  - Rash [Unknown]
  - Pruritus [Recovering/Resolving]
  - Urticaria [Recovering/Resolving]
  - Facial pain [Recovering/Resolving]
  - Ocular hyperaemia [Recovering/Resolving]
